FAERS Safety Report 5084382-6 (Version None)
Quarter: 2006Q3

REPORT INFORMATION
  Report Type: 
  Country: None (occurrence: None)
  Receive Date: 20060815
  Receipt Date: 20060728
  Transmission Date: 20061208
  Serious: Yes (Life-Threatening, Hospitalization)
  Sender: FDA-Public Use
  Company Number: SP00944

PATIENT
  Age: 56 Year
  Sex: Female
  Weight: 68.0396 kg

DRUGS (5)
  1. OSMOPREP [Suspect]
     Indication: COLONOSCOPY
     Dosage: 32 TAB (4 TAB Q15 MIN REPEATING 5 TIMES), ORAL
     Route: 048
     Dates: start: 20060720, end: 20060720
  2. NORVASC [Concomitant]
  3. CENESTIN [Concomitant]
  4. ASPIRIN [Concomitant]
  5. MULTIVITAMIN [Concomitant]

REACTIONS (11)
  - BLOOD POTASSIUM DECREASED [None]
  - BLOOD PRESSURE INCREASED [None]
  - BLOOD SODIUM DECREASED [None]
  - DIZZINESS [None]
  - HEADACHE [None]
  - HEART RATE INCREASED [None]
  - MORBID THOUGHTS [None]
  - MYOCARDIAL INFARCTION [None]
  - NAUSEA [None]
  - PARAESTHESIA [None]
  - TREMOR [None]
